FAERS Safety Report 4407343-6 (Version None)
Quarter: 2004Q3

REPORT INFORMATION
  Report Type: 
  Country: None (occurrence: None)
  Receive Date: 20040721
  Receipt Date: 20040707
  Transmission Date: 20050211
  Serious: Yes (Death)
  Sender: FDA-Public Use
  Company Number: 2004S1000081

PATIENT
  Age: 65 Year
  Sex: Male
  Weight: 75 kg

DRUGS (33)
  1. CUBICIN [Suspect]
     Indication: STAPHYLOCOCCAL SEPSIS
     Dosage: 300 MG; Q24H; IV
     Route: 042
     Dates: start: 20040330, end: 20040402
  2. AZACTAM [Concomitant]
  3. RIFAMPIN [Concomitant]
  4. DIFLUCAN [Concomitant]
  5. NEUPOGEN [Concomitant]
  6. MITOXANTRONE [Concomitant]
  7. ETOPOSIDE [Concomitant]
  8. CEFEPIME [Concomitant]
  9. TOBRAMYCIN [Concomitant]
  10. VANCOMYCIN [Concomitant]
  11. SYNERCID [Concomitant]
  12. CYTARABINE [Concomitant]
  13. ACTOS [Concomitant]
  14. AMARYL [Concomitant]
  15. METFORMIN HCL [Concomitant]
  16. PREVACID [Concomitant]
  17. CIPROFLOXACIN [Concomitant]
  18. AUGMENTIN '250' [Concomitant]
  19. MITOXANTRONE [Concomitant]
  20. NOVOLIN R [Concomitant]
  21. POTASSIUM CHLORIDE [Concomitant]
  22. GLUCERNA WITH FIBER [Concomitant]
  23. MAGNESIUM SULFATE [Concomitant]
  24. HEPARIN [Concomitant]
  25. LASIX [Concomitant]
  26. POTASSIUM CHLORIDE [Concomitant]
  27. TYLENOL [Concomitant]
  28. HUMULIN N [Concomitant]
  29. IMODIUM [Concomitant]
  30. BENADRYL [Concomitant]
  31. SOLU-CORTEF [Concomitant]
  32. CIMETIDINE [Concomitant]
  33. HUMULIN N [Concomitant]

REACTIONS (8)
  - APNOEA [None]
  - BLOOD CREATININE INCREASED [None]
  - BLOOD UREA INCREASED [None]
  - CARDIAC DISORDER [None]
  - GENERALISED OEDEMA [None]
  - PULSE ABSENT [None]
  - SUDDEN DEATH [None]
  - URINARY RETENTION [None]
